FAERS Safety Report 17375863 (Version 3)
Quarter: 2020Q1

REPORT INFORMATION
  Report Type: Report from Study
  Country: US (occurrence: US)
  Receive Date: 20200206
  Receipt Date: 20200312
  Transmission Date: 20200409
  Serious: Yes (Hospitalization, Disabling, Other)
  Sender: FDA-Public Use
  Company Number: US-ROCHE-2535978

PATIENT
  Age: 65 Year
  Sex: Male

DRUGS (10)
  1. FISH OIL, HYDROGENATED [Concomitant]
     Active Substance: FISH OIL, HYDROGENATED
  2. NOVOLOG [Concomitant]
     Active Substance: INSULIN ASPART
  3. BELATACEPT [Concomitant]
     Active Substance: BELATACEPT
  4. CARVEDILOL. [Concomitant]
     Active Substance: CARVEDILOL
     Route: 065
  5. LANTUS [Concomitant]
     Active Substance: INSULIN GLARGINE
  6. ATORVASTATIN [Concomitant]
     Active Substance: ATORVASTATIN
  7. CELLCEPT [Suspect]
     Active Substance: MYCOPHENOLATE MOFETIL\MYCOPHENOLATE MOFETIL HYDROCHLORIDE
     Indication: RENAL TRANSPLANT
     Dosage: 2 TAB BID
     Route: 048
  8. CELLCEPT [Suspect]
     Active Substance: MYCOPHENOLATE MOFETIL\MYCOPHENOLATE MOFETIL HYDROCHLORIDE
     Dosage: 2 IN A.M., 2 IN P.M. EVERY DAY
     Route: 048
  9. PREDNISONE. [Concomitant]
     Active Substance: PREDNISONE
  10. ASPIRIN [ACETYLSALICYLIC ACID] [Concomitant]
     Active Substance: ASPIRIN

REACTIONS (12)
  - Myocardial infarction [Unknown]
  - Abdominal pain upper [Recovering/Resolving]
  - Depression [Not Recovered/Not Resolved]
  - Asthenia [Not Recovered/Not Resolved]
  - Peripheral swelling [Not Recovered/Not Resolved]
  - Blindness [Unknown]
  - Ill-defined disorder [Not Recovered/Not Resolved]
  - Weight decreased [Recovering/Resolving]
  - Nausea [Recovered/Resolved]
  - Neuropathic arthropathy [Not Recovered/Not Resolved]
  - Hernia [Not Recovered/Not Resolved]
  - Intestinal obstruction [Recovering/Resolving]

NARRATIVE: CASE EVENT DATE: 2006
